FAERS Safety Report 8697606 (Version 2)
Quarter: 2013Q2

REPORT INFORMATION
  Report Type: Spontaneous
  Country: US (occurrence: US)
  Receive Date: 20120801
  Receipt Date: 20130422
  Transmission Date: 20140414
  Serious: Yes (Hospitalization)
  Sender: FDA-Public Use
  Company Number: US-ELI_LILLY_AND_COMPANY-US201207007714

PATIENT
  Sex: Female

DRUGS (19)
  1. FORTEO [Suspect]
     Indication: OSTEOPOROSIS
     Dosage: 20 UG, QD
     Route: 058
     Dates: start: 20110613, end: 20120329
  2. FORTEO [Suspect]
     Dosage: 20 UG, QD
     Route: 058
     Dates: end: 201303
  3. OMEPRAZOLE [Concomitant]
     Dosage: UNK
  4. MYCOPHENOLATE MOFETIL [Concomitant]
     Dosage: UNK
  5. PREDNISONE [Concomitant]
     Dosage: 5 MG, UNK
  6. PREDNISONE [Concomitant]
     Dosage: 50 MG, UNK
  7. TRAZONE [Concomitant]
     Dosage: UNK
  8. FUROSEMIDE [Concomitant]
     Dosage: UNK
  9. PLAQUENIL [Concomitant]
     Dosage: UNK
  10. SUCRALFATE [Concomitant]
     Dosage: UNK
  11. ATENOLOL [Concomitant]
     Indication: HEART RATE INCREASED
     Dosage: UNK
  12. LISINOPRIL [Concomitant]
     Indication: BLOOD PRESSURE
     Dosage: UNK
  13. TRAMADOL [Concomitant]
     Dosage: UNK
  14. POTASSIUM [Concomitant]
     Dosage: UNK
  15. BABY ASPIRIN [Concomitant]
     Dosage: UNK
  16. VITAMIN D [Concomitant]
     Dosage: UNK
  17. MULTIVITAMIN [Concomitant]
     Dosage: UNK
  18. CALCIUM [Concomitant]
     Dosage: UNK
  19. STOOL SOFTENER [Concomitant]
     Dosage: UNK

REACTIONS (17)
  - Infection [Recovered/Resolved]
  - Diarrhoea [Recovered/Resolved]
  - Myocardial infarction [Unknown]
  - Pneumonia [Recovered/Resolved]
  - Infection [Recovered/Resolved]
  - Asthenia [Recovered/Resolved]
  - Heart rate increased [Recovered/Resolved]
  - Cystitis [Recovered/Resolved]
  - Sepsis [Recovered/Resolved]
  - Staphylococcal infection [Recovered/Resolved]
  - Muscular weakness [Recovered/Resolved]
  - Balance disorder [Recovered/Resolved]
  - Blood glucose increased [Recovered/Resolved]
  - Diabetes mellitus [Unknown]
  - Immunosuppression [Unknown]
  - Malaise [Unknown]
  - Arthropathy [Unknown]
